FAERS Safety Report 8924069 (Version 1)
Quarter: 2012Q4

REPORT INFORMATION
  Report Type: 
  Country: GB (occurrence: GB)
  Receive Date: 20121127
  Receipt Date: 20121127
  Transmission Date: 20130627
  Serious: Yes (Hospitalization, Disabling, Other)
  Sender: FDA-Public Use
  Company Number: GB-ACCORD-015282

PATIENT
  Age: 52 Year
  Sex: Male
  Weight: 86.17 kg

DRUGS (4)
  1. LAMOTRIGINE [Concomitant]
  2. SIMVASTATIN [Suspect]
     Indication: HIGH CHOLESTEROL
     Route: 048
     Dates: start: 20120428, end: 20121105
  3. METFORMIN [Concomitant]
  4. EPILIM CHRONO [Concomitant]

REACTIONS (1)
  - Muscle atrophy [Not Recovered/Not Resolved]
